FAERS Safety Report 20292080 (Version 1)
Quarter: 2022Q1

REPORT INFORMATION
  Report Type: Spontaneous
  Country: AT (occurrence: AT)
  Receive Date: 20220104
  Receipt Date: 20220104
  Transmission Date: 20220424
  Serious: Yes (Other)
  Sender: FDA-Public Use
  Company Number: AT-002147023-NVSC2021AT279669

PATIENT
  Age: 81 Year
  Sex: Male

DRUGS (3)
  1. LISINOPRIL [Suspect]
     Active Substance: LISINOPRIL
     Indication: Hypertension
     Dosage: UNK UNK, TID, (3X 8H: 20MG IN THE MORNING, 20MG AROUND 15-16P.M. AND 5MG AND 11PM)
     Route: 065
  2. LISINOPRIL [Suspect]
     Active Substance: LISINOPRIL
     Dosage: 30 MILLIGRAM, QD, 10 MG, TID
     Route: 065
  3. LISINOPRIL [Suspect]
     Active Substance: LISINOPRIL
     Dosage: 10 MILLIGRAM, QD, 5 MG, BID (IN THE MORNING AND EVENING)
     Route: 065

REACTIONS (3)
  - Erectile dysfunction [Unknown]
  - Rhinorrhoea [Unknown]
  - Blood pressure increased [Recovered/Resolved]
